FAERS Safety Report 8746605 (Version 2)
Quarter: 2012Q4

REPORT INFORMATION
  Report Type: Report from Study
  Country: IE (occurrence: IE)
  Receive Date: 20120827
  Receipt Date: 20120920
  Transmission Date: 20130627
  Serious: Yes (Hospitalization)
  Sender: FDA-Public Use
  Company Number: IE-ASTELLAS-2012US007159

PATIENT
  Age: 8 Year
  Sex: Male

DRUGS (5)
  1. TACROLIMUS OINTMENT [Suspect]
     Indication: DERMATITIS ATOPIC
     Dosage: 0.03 %, UID/QD
     Route: 061
  2. TACROLIMUS OINTMENT [Suspect]
     Dosage: 0.03 %, once a day twice weekly
     Route: 061
  3. CALCICHEW D3 FORTE [Concomitant]
     Indication: MINERAL SUPPLEMENTATION
     Dosage: UNK UNK, UID/QD
     Route: 048
  4. AZITHROMYCIN [Concomitant]
     Indication: ANTIBIOTIC THERAPY
     Dosage: UNK UNK, 3 days per week
     Route: 048
     Dates: start: 20110718
  5. VIVIDRIN [Concomitant]
     Indication: SEASONAL ALLERGY
     Dosage: UNK UNK, 4 times daily
     Route: 047

REACTIONS (1)
  - Eczema [Recovered/Resolved]
